FAERS Safety Report 5837573-8 (Version None)
Quarter: 2008Q3

REPORT INFORMATION
  Report Type: 
  Country: None (occurrence: None)
  Receive Date: 20080807
  Receipt Date: 20080729
  Transmission Date: 20090109
  Serious: Yes (Hospitalization)
  Sender: FDA-Public Use
  Company Number: DE-AMGEN-UK261609

PATIENT
  Age: 54 Year
  Sex: Female

DRUGS (8)
  1. KINERET [Suspect]
     Indication: RHEUMATOID ARTHRITIS
     Dates: start: 20050301
  2. PREDNISOLONE [Suspect]
  3. METHOTREXATE [Suspect]
     Route: 048
     Dates: start: 20040901
  4. IBANDRONATE [Concomitant]
     Route: 042
  5. PANTOPRAZOLE SODIUM [Concomitant]
  6. CALCIUM CARBONATE/VITAMIN D3 [Concomitant]
  7. ACETAMINOPHEN [Concomitant]
  8. VALORON [Concomitant]

REACTIONS (1)
  - HERPES ZOSTER MULTI-DERMATOMAL [None]
